FAERS Safety Report 10682679 (Version 2)
Quarter: 2015Q1

REPORT INFORMATION
  Report Type: Spontaneous
  Country: AU (occurrence: AU)
  Receive Date: 20141230
  Receipt Date: 20150130
  Transmission Date: 20150720
  Serious: Yes (Hospitalization, Other)
  Sender: FDA-Public Use
  Company Number: AU-PFIZER INC-2014356222

PATIENT
  Age: 80 Year
  Sex: Female
  Weight: 86 kg

DRUGS (3)
  1. LYRICA [Suspect]
     Active Substance: PREGABALIN
     Dosage: 75 MG, DAILY
     Route: 048
     Dates: start: 20141113, end: 20141117
  2. LYRICA [Suspect]
     Active Substance: PREGABALIN
     Indication: FIBROMYALGIA
     Dosage: 25 MG, UNK
     Dates: start: 201410
  3. LYRICA [Suspect]
     Active Substance: PREGABALIN
     Indication: NEURALGIA
     Dosage: 50 MG, UNK

REACTIONS (17)
  - Coronary artery occlusion [Unknown]
  - Mobility decreased [Unknown]
  - Dry mouth [Unknown]
  - Paraesthesia [Recovered/Resolved]
  - Hypoaesthesia [Unknown]
  - Myalgia [Unknown]
  - Screaming [Unknown]
  - Fall [Unknown]
  - Urinary retention [Recovered/Resolved]
  - Pain [Unknown]
  - Urinary hesitation [Unknown]
  - Nail growth abnormal [Unknown]
  - Diarrhoea [Recovering/Resolving]
  - Nerve compression [Recovering/Resolving]
  - Fractured coccyx [Unknown]
  - Gait disturbance [Unknown]
  - Muscle spasms [Unknown]

NARRATIVE: CASE EVENT DATE: 201410
